FAERS Safety Report 21797836 (Version 1)
Quarter: 2022Q4

REPORT INFORMATION
  Report Type: Spontaneous
  Country: DE (occurrence: DE)
  Receive Date: 20221230
  Receipt Date: 20221230
  Transmission Date: 20230113
  Serious: Yes (Other)
  Sender: FDA-Public Use
  Company Number: DE-BAXTER-2022BAX031582

PATIENT
  Age: 57 Year
  Sex: Female

DRUGS (40)
  1. DOXORUBICIN [Suspect]
     Active Substance: DOXORUBICIN
     Indication: NUT midline carcinoma
     Dosage: 20 MG/M2 (75% DOSE REDUCED VCDE) CYCLIC
     Route: 065
  2. DOXORUBICIN [Suspect]
     Active Substance: DOXORUBICIN
     Indication: Metastases to pleura
  3. DOXORUBICIN [Suspect]
     Active Substance: DOXORUBICIN
     Indication: Metastases to lung
  4. DOXORUBICIN [Suspect]
     Active Substance: DOXORUBICIN
     Indication: Metastasis
  5. DOXORUBICIN [Suspect]
     Active Substance: DOXORUBICIN
     Indication: Metastases to breast
  6. IFOSFAMIDE [Suspect]
     Active Substance: IFOSFAMIDE
     Indication: NUT midline carcinoma
     Dosage: 2.8 G/M2 (SECOND CYCLE) CYCLIC
     Route: 065
  7. IFOSFAMIDE [Suspect]
     Active Substance: IFOSFAMIDE
     Indication: Metastasis
  8. CYCLOPHOSPHAMIDE [Suspect]
     Active Substance: CYCLOPHOSPHAMIDE
     Indication: NUT midline carcinoma
     Dosage: 1.5 G/M2 (75% DOSE REDUCED VCDE) CYCLIC
     Route: 065
  9. CYCLOPHOSPHAMIDE [Suspect]
     Active Substance: CYCLOPHOSPHAMIDE
     Indication: Metastases to pleura
  10. CYCLOPHOSPHAMIDE [Suspect]
     Active Substance: CYCLOPHOSPHAMIDE
     Indication: Metastases to lung
  11. CYCLOPHOSPHAMIDE [Suspect]
     Active Substance: CYCLOPHOSPHAMIDE
     Indication: Metastases to breast
  12. CYCLOPHOSPHAMIDE [Suspect]
     Active Substance: CYCLOPHOSPHAMIDE
     Indication: Metastasis
  13. ETOPOSIDE [Suspect]
     Active Substance: ETOPOSIDE
     Indication: NUT midline carcinoma
     Dosage: 100 MG/M2 (SECOND CYCLE) CYCLIC
     Route: 065
  14. ETOPOSIDE [Suspect]
     Active Substance: ETOPOSIDE
     Indication: Metastases to lung
     Dosage: 150 MG/M2) (75 PERCENT DOSE REDUCED VCDE) CYCLIC
     Route: 065
  15. ETOPOSIDE [Suspect]
     Active Substance: ETOPOSIDE
     Indication: Metastases to pleura
  16. ETOPOSIDE [Suspect]
     Active Substance: ETOPOSIDE
     Indication: Metastasis
  17. ETOPOSIDE [Suspect]
     Active Substance: ETOPOSIDE
     Indication: Metastases to breast
  18. VINCRISTINE [Suspect]
     Active Substance: VINCRISTINE
     Indication: NUT midline carcinoma
     Dosage: 2 MG (75% DOSE REDUCED VCDE) CYCLIC
     Route: 065
  19. VINCRISTINE [Suspect]
     Active Substance: VINCRISTINE
     Indication: Metastases to lung
  20. VINCRISTINE [Suspect]
     Active Substance: VINCRISTINE
     Indication: Metastases to pleura
  21. VINCRISTINE [Suspect]
     Active Substance: VINCRISTINE
     Indication: Metastasis
  22. VINCRISTINE [Suspect]
     Active Substance: VINCRISTINE
     Indication: Metastases to breast
  23. VORINOSTAT [Suspect]
     Active Substance: VORINOSTAT
     Indication: NUT midline carcinoma
     Dosage: 270 MG/D
     Route: 048
  24. VORINOSTAT [Suspect]
     Active Substance: VORINOSTAT
     Indication: Metastasis
  25. TALIMOGENE LAHERPAREPVEC [Suspect]
     Active Substance: TALIMOGENE LAHERPAREPVEC
     Indication: NUT midline carcinoma
     Dosage: 108 PFU/ML
     Route: 036
  26. TALIMOGENE LAHERPAREPVEC [Suspect]
     Active Substance: TALIMOGENE LAHERPAREPVEC
     Indication: Metastases to pleura
     Dosage: SECOND DOSE OF T-VEC
     Route: 036
  27. TALIMOGENE LAHERPAREPVEC [Suspect]
     Active Substance: TALIMOGENE LAHERPAREPVEC
     Indication: Metastases to lung
     Dosage: THIRD INTRATUMORAL DOSE T-VEC
     Route: 036
  28. TALIMOGENE LAHERPAREPVEC [Suspect]
     Active Substance: TALIMOGENE LAHERPAREPVEC
     Indication: Metastasis
  29. TALIMOGENE LAHERPAREPVEC [Suspect]
     Active Substance: TALIMOGENE LAHERPAREPVEC
     Indication: Metastases to breast
  30. PEMBROLIZUMAB [Suspect]
     Active Substance: PEMBROLIZUMAB
     Indication: NUT midline carcinoma
     Dosage: 200 MG (SECOND PART OF IMMUNOVIROTHERAPY)
     Route: 042
  31. PEMBROLIZUMAB [Suspect]
     Active Substance: PEMBROLIZUMAB
     Indication: Metastases to lung
  32. PEMBROLIZUMAB [Suspect]
     Active Substance: PEMBROLIZUMAB
     Indication: Metastases to pleura
  33. PEMBROLIZUMAB [Suspect]
     Active Substance: PEMBROLIZUMAB
     Indication: Metastases to breast
  34. PEMBROLIZUMAB [Suspect]
     Active Substance: PEMBROLIZUMAB
     Indication: Metastasis
  35. CARBOPLATIN [Concomitant]
     Active Substance: CARBOPLATIN
     Indication: Lung neoplasm malignant
     Dosage: AUC5
     Route: 065
  36. CARBOPLATIN [Concomitant]
     Active Substance: CARBOPLATIN
     Indication: Malignant pleural effusion
  37. CARBOPLATIN [Concomitant]
     Active Substance: CARBOPLATIN
     Indication: Metastases to pleura
  38. PACLITAXEL [Concomitant]
     Active Substance: PACLITAXEL
     Indication: Lung neoplasm malignant
     Dosage: 175 MG/M2
     Route: 065
  39. PACLITAXEL [Concomitant]
     Active Substance: PACLITAXEL
     Indication: Malignant pleural effusion
  40. PACLITAXEL [Concomitant]
     Active Substance: PACLITAXEL
     Indication: Metastases to pleura

REACTIONS (3)
  - Hallucination [Unknown]
  - Pancytopenia [Unknown]
  - Confusional state [Unknown]
